FAERS Safety Report 9856765 (Version 2)
Quarter: 2015Q1

REPORT INFORMATION
  Report Type: Report from Study
  Country: US (occurrence: US)
  Receive Date: 20140130
  Receipt Date: 20150109
  Transmission Date: 20150721
  Serious: Yes (Hospitalization)
  Sender: FDA-Public Use
  Company Number: US-ACTELION-A-NJ2014-93950

PATIENT
  Age: 81 Year
  Sex: Female

DRUGS (11)
  1. COUMADIN [Concomitant]
     Active Substance: WARFARIN SODIUM
  2. BUMEX [Concomitant]
     Active Substance: BUMETANIDE
  3. ZOLOFT [Concomitant]
     Active Substance: SERTRALINE HYDROCHLORIDE
  4. REVATIO [Concomitant]
     Active Substance: SILDENAFIL CITRATE
  5. TRAZODONE [Concomitant]
     Active Substance: TRAZODONE HYDROCHLORIDE
  6. TRACLEER [Suspect]
     Active Substance: BOSENTAN\BOSENTAN MONOHYDRATE
     Indication: PULMONARY ARTERIAL HYPERTENSION
     Dosage: 62.5 MG, BID
     Route: 048
     Dates: start: 20091105, end: 20100203
  7. ASA [Concomitant]
     Active Substance: ASPIRIN
  8. TRACLEER [Suspect]
     Active Substance: BOSENTAN\BOSENTAN MONOHYDRATE
     Dosage: 125 MG, BID
     Route: 048
     Dates: start: 20100204
  9. PRILOSEC [Concomitant]
     Active Substance: OMEPRAZOLE MAGNESIUM
  10. PRAVASTATIN [Concomitant]
     Active Substance: PRAVASTATIN\PRAVASTATIN SODIUM
  11. COREG [Concomitant]
     Active Substance: CARVEDILOL

REACTIONS (5)
  - Large intestine polyp [Recovered/Resolved]
  - Asthenia [Recovered/Resolved]
  - Intestinal haemorrhage [Recovered/Resolved]
  - Lipoma [Recovered/Resolved]
  - Transfusion [Recovered/Resolved]

NARRATIVE: CASE EVENT DATE: 20131113
